FAERS Safety Report 6175105-8 (Version None)
Quarter: 2009Q2

REPORT INFORMATION
  Report Type: 
  Country: None (occurrence: None)
  Receive Date: 20090430
  Receipt Date: 20090302
  Transmission Date: 20091009
  Serious: No
  Sender: FDA-Public Use
  Company Number: US-ASTRAZENECA-2009UW05522

PATIENT
  Age: 49 Year
  Sex: Male
  Weight: 67.1 kg

DRUGS (13)
  1. NEXIUM [Suspect]
     Route: 048
  2. ABILIFY [Concomitant]
     Indication: AGITATION
     Route: 048
  3. ALLEGRA [Concomitant]
     Indication: NASAL DISCOMFORT
     Route: 048
  4. CARADURA [Concomitant]
     Indication: URINARY RETENTION
     Route: 048
  5. CODRENTRIN [Concomitant]
     Indication: DROOLING
     Route: 048
  6. HALOPERIDOL [Concomitant]
     Indication: PSYCHOTIC DISORDER
     Route: 048
  7. LEXAPRO [Concomitant]
     Indication: AGITATION
     Route: 048
  8. POLYETHOLENE GLYCOL [Concomitant]
     Indication: INTESTINAL FUNCTIONAL DISORDER
     Route: 048
  9. PROPANIDOL [Concomitant]
     Indication: ILL-DEFINED DISORDER
     Route: 048
  10. RESTASIS [Concomitant]
     Indication: DRY EYE
  11. RHINOCORT [Concomitant]
     Indication: NASAL CONGESTION
  12. TRASIDOME [Concomitant]
     Indication: INSOMNIA
     Route: 048
  13. TRASIDOME [Concomitant]
     Indication: AGITATION
     Route: 048

REACTIONS (2)
  - DROOLING [None]
  - ERUCTATION [None]
